FAERS Safety Report 12957310 (Version 3)
Quarter: 2017Q1

REPORT INFORMATION
  Report Type: Spontaneous
  Country: US (occurrence: US)
  Receive Date: 20161118
  Receipt Date: 20170203
  Transmission Date: 20170428
  Serious: Yes (Other)
  Sender: FDA-Public Use
  Company Number: US-BAYER-2016-219424

PATIENT
  Age: 46 Year
  Sex: Male
  Weight: 81.63 kg

DRUGS (22)
  1. METHYLPREDNISOLONE. [Concomitant]
     Active Substance: METHYLPREDNISOLONE
     Indication: SINUSITIS
  2. AVELOX [Suspect]
     Active Substance: MOXIFLOXACIN HYDROCHLORIDE
     Indication: SINUSITIS
     Dosage: 400 MGQD
     Route: 048
     Dates: start: 20050203, end: 20050213
  3. AVELOX [Suspect]
     Active Substance: MOXIFLOXACIN HYDROCHLORIDE
     Indication: RESPIRATORY TRACT CONGESTION
     Dosage: 400 MG, QD
     Dates: start: 20050601, end: 20050609
  4. AVELOX [Suspect]
     Active Substance: MOXIFLOXACIN HYDROCHLORIDE
     Indication: SINUSITIS
     Dosage: 400 MG, UNK
     Dates: start: 20050608, end: 20050818
  5. METOPROLOL TARTRATE. [Concomitant]
     Active Substance: METOPROLOL TARTRATE
     Indication: HYPERTENSION
     Dosage: 25 MG, QD
     Route: 048
     Dates: start: 20101104
  6. GABAPENTIN. [Concomitant]
     Active Substance: GABAPENTIN
     Indication: NEUROPATHY PERIPHERAL
     Dosage: 300 MG, BID
     Route: 048
  7. AVELOX [Suspect]
     Active Substance: MOXIFLOXACIN HYDROCHLORIDE
     Indication: SINUSITIS
     Dosage: 400 MG, BID
     Route: 048
     Dates: start: 20050808, end: 20050818
  8. ESZOPICLONE. [Concomitant]
     Active Substance: ESZOPICLONE
     Indication: TINNITUS
     Dosage: 3 MG, UNK
     Route: 048
  9. METOPROLOL TARTRATE. [Concomitant]
     Active Substance: METOPROLOL TARTRATE
     Indication: CARDIOMYOPATHY
  10. METHYLPREDNISOLONE. [Concomitant]
     Active Substance: METHYLPREDNISOLONE
     Indication: BRONCHITIS
  11. LISINOPRIL. [Concomitant]
     Active Substance: LISINOPRIL
     Indication: CARDIOMYOPATHY
  12. RIFAMPIN. [Concomitant]
     Active Substance: RIFAMPIN
     Indication: INFECTION
     Dosage: UNK
     Dates: start: 20100127
  13. CRESTOR [Concomitant]
     Active Substance: ROSUVASTATIN CALCIUM
     Indication: HYPERLIPIDAEMIA
     Dosage: UNK
     Dates: start: 2005, end: 2006
  14. LEVAQUIN [Suspect]
     Active Substance: LEVOFLOXACIN
     Indication: RESPIRATORY TRACT CONGESTION
     Dosage: 500 MG, QD
     Route: 048
     Dates: start: 20050609
  15. LEVAQUIN [Suspect]
     Active Substance: LEVOFLOXACIN
     Indication: RESPIRATORY TRACT CONGESTION
     Dosage: UNK
  16. DICLOXACILLIN [Concomitant]
     Active Substance: DICLOXACILLIN
     Indication: INFECTION
     Dosage: UNK
     Dates: start: 20100127
  17. CIPROFLOXACIN. [Suspect]
     Active Substance: CIPROFLOXACIN
     Indication: INFECTION
     Dosage: 500 MG, UNK
     Route: 048
     Dates: start: 20100226, end: 20100328
  18. LISINOPRIL. [Concomitant]
     Active Substance: LISINOPRIL
     Indication: HYPERTENSION
     Dosage: 5 MG, QD
     Route: 048
     Dates: start: 2009
  19. LEVAQUIN [Suspect]
     Active Substance: LEVOFLOXACIN
     Indication: RESPIRATORY TRACT CONGESTION
     Dosage: UNK
     Dates: start: 200506
  20. ASPIRIN. [Concomitant]
     Active Substance: ASPIRIN
     Indication: CEREBROVASCULAR ACCIDENT PROPHYLAXIS
     Dosage: 81 MG, QD
     Route: 048
  21. AMOXICILLIN. [Concomitant]
     Active Substance: AMOXICILLIN
     Indication: INFECTION
     Dosage: UNK
     Dates: start: 2006
  22. LUNESTA [Concomitant]
     Active Substance: ESZOPICLONE
     Indication: INSOMNIA
     Dosage: UNK
     Dates: start: 2005

REACTIONS (8)
  - Nervous system disorder [None]
  - Neuropathy peripheral [Not Recovered/Not Resolved]
  - Anxiety [None]
  - Mental disorder [None]
  - Musculoskeletal injury [None]
  - Cardiovascular disorder [None]
  - Skin injury [None]
  - Post-traumatic stress disorder [None]

NARRATIVE: CASE EVENT DATE: 20050609
